FAERS Safety Report 4305793-X (Version None)
Quarter: 2004Q1

REPORT INFORMATION
  Report Type: 
  Country: None (occurrence: None)
  Receive Date: 20040226
  Receipt Date: 20040226
  Transmission Date: 20041129
  Serious: No
  Sender: FDA-Public Use
  Company Number: None

PATIENT
  Age: 50 Year
  Sex: Female

DRUGS (1)
  1. FLUOXETINE 20 MG (GENERIC PROZAC) [Suspect]
     Indication: DYSTHYMIC DISORDER
     Dosage: 20MG THREE QD ORALLY
     Route: 048
     Dates: end: 20020601

REACTIONS (5)
  - DEPRESSION [None]
  - DRUG INEFFECTIVE [None]
  - HEADACHE [None]
  - PHARMACEUTICAL PRODUCT COMPLAINT [None]
  - RASH [None]
